FAERS Safety Report 10990976 (Version 2)
Quarter: 2015Q2

REPORT INFORMATION
  Report Type: Spontaneous
  Country: TR (occurrence: TR)
  Receive Date: 20150406
  Receipt Date: 20150430
  Transmission Date: 20150821
  Serious: Yes (Death, Other)
  Sender: FDA-Public Use
  Company Number: TR-BAXTER-2015BAX017226

PATIENT
  Sex: Male

DRUGS (1)
  1. KIOVIG [Suspect]
     Active Substance: HUMAN IMMUNOGLOBULIN G
     Indication: PRIMARY IMMUNODEFICIENCY SYNDROME
     Dosage: 0.5 ML/KG
     Route: 042
     Dates: start: 20150325, end: 20150325

REACTIONS (2)
  - Hyperthermia [Unknown]
  - Aspiration [Fatal]

NARRATIVE: CASE EVENT DATE: 20150325
